FAERS Safety Report 9168598 (Version 1)
Quarter: 2013Q1

REPORT INFORMATION
  Report Type: Report from Study
  Country: US (occurrence: US)
  Receive Date: 20130318
  Receipt Date: 20130318
  Transmission Date: 20140127
  Serious: Yes (Hospitalization, Other)
  Sender: FDA-Public Use
  Company Number: US-009507513-1303USA007782

PATIENT
  Age: 63 Year
  Sex: Female

DRUGS (3)
  1. VICTRELIS [Suspect]
     Indication: CHRONIC HEPATITIS C
     Dosage: UNK
     Dates: start: 20130108, end: 2013
  2. REBETOL [Suspect]
     Indication: CHRONIC HEPATITIS C
     Dosage: 1000 MG, QD, DIVIDED DOSES PER DAY
     Route: 048
     Dates: start: 20121120
  3. PEGASYS [Suspect]
     Indication: CHRONIC HEPATITIS C
     Dosage: 180 MICROGRAM, QW. DOSE FORM:  PROCLICK
     Route: 058
     Dates: start: 20121120

REACTIONS (15)
  - Arthralgia [Unknown]
  - Anaemia [Unknown]
  - Bronchitis [Unknown]
  - Eating disorder [Unknown]
  - Gait disturbance [Unknown]
  - Productive cough [Not Recovered/Not Resolved]
  - Nausea [Not Recovered/Not Resolved]
  - Myalgia [Unknown]
  - Decreased appetite [Unknown]
  - Dyspnoea [Unknown]
  - Memory impairment [Unknown]
  - Confusional state [Unknown]
  - Vomiting [Unknown]
  - Diarrhoea [Unknown]
  - Fatigue [Unknown]
